FAERS Safety Report 6252035-4 (Version None)
Quarter: 2009Q2

REPORT INFORMATION
  Report Type: 
  Country: None (occurrence: None)
  Receive Date: 20090630
  Receipt Date: 20080117
  Transmission Date: 20091009
  Serious: Yes (Hospitalization)
  Sender: FDA-Public Use
  Company Number: US-ROCHE-638663

PATIENT
  Sex: Male

DRUGS (4)
  1. ENFUVIRTIDE [Suspect]
     Indication: HIV INFECTION
     Route: 065
     Dates: start: 20050331, end: 20080325
  2. DIFLUCAN [Concomitant]
     Dosage: FREQ: QD
     Dates: end: 20080814
  3. KALETRA [Concomitant]
     Dates: end: 20080325
  4. REYATAZ [Concomitant]
     Dates: end: 20080325

REACTIONS (2)
  - CONVULSION [None]
  - ENCEPHALITIS [None]
